FAERS Safety Report 14008134 (Version 4)
Quarter: 2017Q4

REPORT INFORMATION
  Report Type: Spontaneous
  Country: US (occurrence: US)
  Receive Date: 20170925
  Receipt Date: 20171214
  Transmission Date: 20180321
  Serious: No
  Sender: FDA-Public Use
  Company Number: US-PFIZER INC-2017407475

PATIENT
  Age: 13 Year
  Sex: Male
  Weight: 35.38 kg

DRUGS (9)
  1. CLONIDINE. [Concomitant]
     Active Substance: CLONIDINE
     Dosage: 0.6 MG, DAILY, (0.2 MG 1/2 TAB 8 AM; 1/2 TAB 11 AM; 2 TAB HS)
  2. CYPROHEPTADINE. [Concomitant]
     Active Substance: CYPROHEPTADINE
     Dosage: 4 MG, 1X/DAY (HS)
  3. GENOTROPIN [Suspect]
     Active Substance: SOMATROPIN
     Indication: UNDERWEIGHT
  4. MONTELUKAST [Concomitant]
     Active Substance: MONTELUKAST SODIUM
     Dosage: 5 MG, DAILY
  5. STRATTERA [Concomitant]
     Active Substance: ATOMOXETINE HYDROCHLORIDE
     Dosage: 40 MG, 1X/DAY (HS)
  6. GENOTROPIN [Suspect]
     Active Substance: SOMATROPIN
     Indication: BODY HEIGHT BELOW NORMAL
     Dosage: 12 MG, 1X/DAY
     Dates: start: 201711
  7. ACYCLOVIR. [Concomitant]
     Active Substance: ACYCLOVIR
     Indication: MOUTH ULCERATION
     Dosage: 400 MG, AS NEEDED, 1 TAB 2X DAILY PRN FOR 10 DAYS)
  8. FLUTICASONE. [Concomitant]
     Active Substance: FLUTICASONE
     Dosage: UNK, AS NEEDED (1 SPRAY EACH NOSTRIL)
     Route: 045
  9. GENOTROPIN [Suspect]
     Active Substance: SOMATROPIN
     Indication: GROWTH HORMONE DEFICIENCY
     Dosage: 1.4 MG, 1X/DAY
     Dates: start: 201708

REACTIONS (3)
  - Weight increased [Not Recovered/Not Resolved]
  - Device issue [Recovered/Resolved]
  - Incorrect dose administered [Recovered/Resolved]

NARRATIVE: CASE EVENT DATE: 20170911
